FAERS Safety Report 4823886-5 (Version None)
Quarter: 2005Q4

REPORT INFORMATION
  Report Type: 
  Country: None (occurrence: None)
  Receive Date: 20051107
  Receipt Date: 20051021
  Transmission Date: 20060501
  Serious: Yes (Death)
  Sender: FDA-Public Use
  Company Number: MEDI-0003762

PATIENT
  Age: 5 Month
  Sex: Male
  Weight: 5.5 kg

DRUGS (2)
  1. SYNAGIS [Suspect]
     Indication: ANTIVIRAL PROPHYLAXIS
     Dosage: 1 IN 30 D, INTRAMUSCULAR
     Route: 030
     Dates: start: 20041101, end: 20041101
  2. LASIX [Concomitant]

REACTIONS (25)
  - AGITATION [None]
  - ATELECTASIS [None]
  - BRONCHIAL OBSTRUCTION [None]
  - CARDIAC FAILURE CHRONIC [None]
  - CARDIOGENIC SHOCK [None]
  - CATHETER SEPSIS [None]
  - CEREBRAL ATROPHY [None]
  - CEREBRAL VENTRICLE DILATATION [None]
  - CONDITION AGGRAVATED [None]
  - CONVULSION [None]
  - DEVICE RELATED INFECTION [None]
  - DILATATION ATRIAL [None]
  - ENCEPHALOPATHY [None]
  - GENERAL PHYSICAL HEALTH DETERIORATION [None]
  - HEMIPARESIS [None]
  - LEFT VENTRICULAR FAILURE [None]
  - PANEL-REACTIVE ANTIBODY INCREASED [None]
  - PSEUDOMONAS INFECTION [None]
  - PYREXIA [None]
  - RENAL FAILURE [None]
  - STAPHYLOCOCCAL SEPSIS [None]
  - SUBARACHNOID HAEMORRHAGE [None]
  - SUBDURAL HAEMORRHAGE [None]
  - TACHYPNOEA [None]
  - TRACHEITIS [None]
